FAERS Safety Report 7371973-2 (Version None)
Quarter: 2011Q1

REPORT INFORMATION
  Report Type: 
  Country: None (occurrence: None)
  Receive Date: 20110324
  Receipt Date: 20110317
  Transmission Date: 20110831
  Serious: Yes (Death)
  Sender: FDA-Public Use
  Company Number: US-ROCHE-766776

PATIENT
  Age: 56 Year
  Sex: Female

DRUGS (10)
  1. METFORMIN (NON-ROCHE/NON-COMPARATOR) [Suspect]
     Dosage: ONGOING STATUS UNKNOWN AT THE TIME OF DEATH
     Route: 048
  2. OXYCODONE [Suspect]
     Dosage: DRUG NAME ALSO REPORTED AS OXYCONTIN, ONGOING STATUS UNKNOWN AT THE TIME OF DEATH
     Route: 048
  3. SIMVASTATIN [Suspect]
     Dosage: ONGOING STATUS UNKNOWN AT THE TIME OF DEATH
     Route: 048
  4. ETHANOL [Suspect]
     Dosage: ONGOING STATUS UNKNOWN AT THE TIME OF DEATH
     Route: 048
  5. LISINOPRIL [Suspect]
     Dosage: ONGOING STATUS UNKNOWN AT THE TIME OF DEATH
     Route: 048
  6. MELOXICAM [Suspect]
     Dosage: ONGOING STATUS UNKNOWN AT THE TIME OF DEATH
     Route: 048
  7. CLONAZEPAM [Suspect]
     Dosage: ONGOING STATUS UNKNOWN AT THE TIME OF DEATH
     Route: 048
  8. VENLAFAXINE [Suspect]
     Dosage: FORM: EXTENDED RELEASE, ONGOING STATUS UNKNOWN AT THE TIME OF DEATH
     Route: 048
  9. PROMETHAZINE [Suspect]
     Dosage: ONGOING STATUS UNKNOWN AT THE TIME OF DEATH
     Route: 048
  10. TRAMADOL [Suspect]
     Dosage: ONGOING STATUS UNKNOWN AT THE TIME OF DEATH
     Route: 048

REACTIONS (1)
  - TOXICITY TO VARIOUS AGENTS [None]
